FAERS Safety Report 9767963 (Version 1)
Quarter: 2013Q4

REPORT INFORMATION
  Report Type: Spontaneous
  Country: EG (occurrence: EG)
  Receive Date: 20131217
  Receipt Date: 20131217
  Transmission Date: 20140711
  Serious: Yes (Death)
  Sender: FDA-Public Use
  Company Number: EG-ABBVIE-13P-048-1178975-00

PATIENT
  Age: 2 Month
  Sex: Female

DRUGS (3)
  1. SODIUM VALPROATE [Suspect]
     Indication: EPILEPSY
  2. VIGABATRIN [Suspect]
     Indication: EPILEPSY
  3. CLONAZEPAM [Suspect]
     Indication: EPILEPSY

REACTIONS (4)
  - Therapeutic product ineffective [Fatal]
  - Pneumonia [Fatal]
  - Epilepsy [Fatal]
  - Diabetes mellitus [Fatal]
